FAERS Safety Report 7915815-2 (Version None)
Quarter: 2011Q4

REPORT INFORMATION
  Report Type: 
  Country: None (occurrence: None)
  Receive Date: 20111115
  Receipt Date: 20111110
  Transmission Date: 20120403
  Serious: Yes (Hospitalization, Other)
  Sender: FDA-Public Use
  Company Number: US-PFIZER INC-2011266521

PATIENT
  Age: 17 Year
  Sex: Female
  Weight: 49.887 kg

DRUGS (3)
  1. PRISTIQ [Suspect]
     Dosage: ONE TABLET AT HOME
     Dates: start: 20110901, end: 20110901
  2. PROZAC [Suspect]
     Indication: DEPRESSION
     Dosage: 10 MG, 1X/DAY
     Dates: start: 20090101, end: 20111024
  3. PRISTIQ [Suspect]
     Indication: DEPRESSION
     Dosage: 50 MG, UNK
     Route: 048
     Dates: start: 20110901, end: 20111001

REACTIONS (4)
  - BLISTER [None]
  - PSYCHOTIC DISORDER [None]
  - SEROTONIN SYNDROME [None]
  - PERSONALITY CHANGE [None]
